FAERS Safety Report 19628647 (Version 1)
Quarter: 2021Q3

REPORT INFORMATION
  Report Type: Spontaneous
  Country: RO (occurrence: RO)
  Receive Date: 20210729
  Receipt Date: 20210729
  Transmission Date: 20211014
  Serious: Yes (Other)
  Sender: FDA-Public Use
  Company Number: RO-HQ SPECIALTY-RO-2021INT000123

PATIENT
  Age: 34 Year
  Sex: Male

DRUGS (3)
  1. CISPLATIN. [Suspect]
     Active Substance: CISPLATIN
     Indication: TESTICULAR SEMINOMA (PURE)
     Dosage: 20 MG/MP IN THE FIRST FIVE DAYS, REPEAT ON DAY 21
     Route: 065
  2. BLEOMYCIN [Suspect]
     Active Substance: BLEOMYCIN SULFATE
     Indication: TESTICULAR SEMINOMA (PURE)
     Dosage: 30 MG ON DAYS 1?5, 8 AND 15, REPEAT ON DAY 21
     Route: 065
  3. ETOPOSIDE. [Suspect]
     Active Substance: ETOPOSIDE
     Indication: TESTICULAR SEMINOMA (PURE)
     Dosage: 100 MG/MP IN THE FIRST FIVE DAYS, REPEAT ON DAY 21

REACTIONS (1)
  - Acute myocardial infarction [Unknown]
